FAERS Safety Report 25653541 (Version 1)
Quarter: 2025Q3

REPORT INFORMATION
  Report Type: Spontaneous
  Country: US (occurrence: US)
  Receive Date: 20250807
  Receipt Date: 20250807
  Transmission Date: 20251021
  Serious: Yes (Hospitalization, Other)
  Sender: NOVITIUM PHARMA
  Company Number: US-NOVITIUMPHARMA-2025USNVP01910

PATIENT
  Age: 16 Year
  Sex: Female

DRUGS (4)
  1. DEXAMETHASONE [Suspect]
     Active Substance: DEXAMETHASONE
     Indication: Precursor T-lymphoblastic lymphoma/leukaemia
  2. ASPARAGINASE [Concomitant]
     Active Substance: ASPARAGINASE
  3. DAUNORUBICIN [Concomitant]
     Active Substance: DAUNORUBICIN
  4. VINCRISTINE [Concomitant]
     Active Substance: VINCRISTINE

REACTIONS (3)
  - Renal failure [Recovered/Resolved]
  - Respiratory failure [Recovered/Resolved]
  - Tumour lysis syndrome [Recovered/Resolved]
